FAERS Safety Report 5381804-8 (Version None)
Quarter: 2007Q3

REPORT INFORMATION
  Report Type: 
  Country: None (occurrence: None)
  Receive Date: 20070705
  Receipt Date: 20070705
  Transmission Date: 20080115
  Serious: No
  Sender: FDA-Public Use
  Company Number: None

PATIENT
  Age: 37 Year
  Sex: Female
  Weight: 97.5234 kg

DRUGS (1)
  1. AZITHROMYCIN [Suspect]
     Indication: STREPTOCOCCAL INFECTION
     Dosage: 2 TAB INITIALLY PO; 1 TAB DAILY FOR 4 DAYS PO
     Route: 048
     Dates: start: 20070702, end: 20070702

REACTIONS (2)
  - PRURITUS [None]
  - URTICARIA [None]
